FAERS Safety Report 21280463 (Version 8)
Quarter: 2022Q4

REPORT INFORMATION
  Report Type: Spontaneous
  Country: US (occurrence: US)
  Receive Date: 20220901
  Receipt Date: 20221215
  Transmission Date: 20230113
  Serious: No
  Sender: FDA-Public Use
  Company Number: US-PFIZER INC-PV202200054074

PATIENT
  Age: 47 Year
  Sex: Female

DRUGS (1)
  1. IBRANCE [Suspect]
     Active Substance: PALBOCICLIB
     Dosage: UNK
     Dates: start: 20220825

REACTIONS (9)
  - Musculoskeletal chest pain [Recovering/Resolving]
  - Nausea [Not Recovered/Not Resolved]
  - Fatigue [Unknown]
  - Diarrhoea [Unknown]
  - Hot flush [Unknown]
  - Insomnia [Unknown]
  - Alopecia [Unknown]
  - Decreased appetite [Unknown]
  - Night sweats [Unknown]

NARRATIVE: CASE EVENT DATE: 20220101
